FAERS Safety Report 24704814 (Version 1)
Quarter: 2024Q4

REPORT INFORMATION
  Report Type: Spontaneous
  Country: US (occurrence: US)
  Receive Date: 20241206
  Receipt Date: 20241206
  Transmission Date: 20250115
  Serious: Yes (Hospitalization, Other)
  Sender: ROCHE
  Company Number: US-ROCHE-10000145970

PATIENT
  Age: 76 Year
  Sex: Female

DRUGS (1)
  1. RITUXAN [Suspect]
     Active Substance: RITUXIMAB
     Indication: Product used for unknown indication
     Route: 065

REACTIONS (7)
  - Immune thrombocytopenia [Unknown]
  - Autoimmune haemolytic anaemia [Unknown]
  - Blister [Unknown]
  - Swelling face [Unknown]
  - Skin haemorrhage [Unknown]
  - Blood pressure decreased [Unknown]
  - Platelet count decreased [Unknown]
